FAERS Safety Report 7788162-X (Version None)
Quarter: 2011Q3

REPORT INFORMATION
  Report Type: 
  Country: None (occurrence: None)
  Receive Date: 20110927
  Receipt Date: 20110913
  Transmission Date: 20111222
  Serious: Yes (Life-Threatening, Hospitalization, Other)
  Sender: FDA-Public Use
  Company Number: 2011MA013460

PATIENT
  Age: 38 Year
  Sex: Male

DRUGS (1)
  1. CARBAMAZEPINE [Suspect]
     Indication: COMPLEX PARTIAL SEIZURES
     Dosage: 300 MG, BID

REACTIONS (16)
  - HYPONATRAEMIA [None]
  - DYSPNOEA [None]
  - ALANINE AMINOTRANSFERASE INCREASED [None]
  - HYPERKALAEMIA [None]
  - ASPARTATE AMINOTRANSFERASE INCREASED [None]
  - MADAROSIS [None]
  - HAEMOGLOBIN DECREASED [None]
  - TOXIC EPIDERMAL NECROLYSIS [None]
  - CULTURE WOUND POSITIVE [None]
  - PSEUDOMONAS TEST POSITIVE [None]
  - SCAB [None]
  - HYPOTENSION [None]
  - TACHYPNOEA [None]
  - KERATITIS [None]
  - STAPHYLOCOCCUS TEST POSITIVE [None]
  - SKIN HYPERPIGMENTATION [None]
